FAERS Safety Report 16451598 (Version 1)
Quarter: 2019Q2

REPORT INFORMATION
  Report Type: Spontaneous
  Country: US (occurrence: None)
  Receive Date: 20190619
  Receipt Date: 20190619
  Transmission Date: 20190711
  Serious: Yes (Other)
  Sender: FDA-Public Use
  Company Number: SAER 15814

PATIENT
  Age: 82 Year
  Sex: Female

DRUGS (5)
  1. ZOLOFT [Concomitant]
     Active Substance: SERTRALINE HYDROCHLORIDE
  2. CBD +STRESS DEFY [Suspect]
     Active Substance: CANNABIDIOL\HERBALS
     Indication: STRESS
     Route: 048
     Dates: start: 20190401, end: 20190502
  3. METHYCOBALAMIN [Concomitant]
  4. VARIOUS OTHER VITAMINS [Concomitant]
  5. METHYLFOLATE [Concomitant]
     Active Substance: LEVOMEFOLATE CALCIUM

REACTIONS (6)
  - Fatigue [None]
  - Weight decreased [None]
  - Dry mouth [None]
  - Food poisoning [None]
  - Diarrhoea [None]
  - Dry throat [None]

NARRATIVE: CASE EVENT DATE: 20190423
